FAERS Safety Report 5510609-X (Version None)
Quarter: 2007Q4

REPORT INFORMATION
  Report Type: 
  Country: None (occurrence: None)
  Receive Date: 20071108
  Receipt Date: 20071026
  Transmission Date: 20080405
  Serious: No
  Sender: FDA-Public Use
  Company Number: US-BOEHRINGER INGELHEIM PHARMACEUTICALS, INC.-2007-BP-23465BP

PATIENT
  Sex: Male

DRUGS (2)
  1. MICARDIS [Suspect]
     Indication: HYPERTENSION
     Route: 048
     Dates: start: 20070901
  2. SINGULAIR [Concomitant]
     Indication: HYPERSENSITIVITY

REACTIONS (6)
  - BONE PAIN [None]
  - BREAST PAIN [None]
  - DIZZINESS [None]
  - INFLUENZA [None]
  - NECK PAIN [None]
  - PYREXIA [None]
